FAERS Safety Report 12416667 (Version 1)
Quarter: 2016Q2

REPORT INFORMATION
  Report Type: Spontaneous
  Country: FR (occurrence: FR)
  Receive Date: 20160530
  Receipt Date: 20160530
  Transmission Date: 20160815
  Serious: Yes (Other)
  Sender: FDA-Public Use
  Company Number: FR-JNJFOC-20151000583

PATIENT
  Sex: Female
  Weight: 16.2 kg

DRUGS (6)
  1. EPITOMAX [Suspect]
     Active Substance: TOPIRAMATE
     Indication: EPILEPSY
     Dosage: ON EVENING DURING 1 MONTH
     Route: 048
  2. EPITOMAX [Suspect]
     Active Substance: TOPIRAMATE
     Indication: EPILEPSY
     Dosage: 10 MG ON MORNING AND 15 MG ON EVENING
     Route: 048
     Dates: start: 2013
  3. KEPPRA [Concomitant]
     Active Substance: LEVETIRACETAM
     Indication: PRODUCT USED FOR UNKNOWN INDICATION
     Dosage: 4 ML ON MORNING AND 3.6 ML ON EVENING DURING 6 MONTHS
     Route: 048
  4. URBANYL [Concomitant]
     Active Substance: CLOBAZAM
     Indication: PRODUCT USED FOR UNKNOWN INDICATION
     Dosage: 5 MG ON MORNING AND EVENING DURING 3 MONTHS, IN CASE 1 CRISIS PER DAY, A DOSE OF 5 MG IN MIDDAY
     Route: 065
  5. LAMICTAL [Concomitant]
     Active Substance: LAMOTRIGINE
     Indication: PRODUCT USED FOR UNKNOWN INDICATION
     Dosage: 10 MG ON MORNING AND EVENING DURING 3 MONTHS
     Route: 048
  6. EPITOMAX [Suspect]
     Active Substance: TOPIRAMATE
     Indication: EPILEPSY
     Dosage: 10 MG ON MORNING AND ON EVENING DURING 1 MONTH
     Route: 048

REACTIONS (4)
  - Wrong technique in product usage process [Unknown]
  - Decreased appetite [Unknown]
  - Epilepsy [Unknown]
  - Growth retardation [Unknown]
